FAERS Safety Report 4300502-2 (Version None)
Quarter: 2004Q1

REPORT INFORMATION
  Report Type: 
  Country: None (occurrence: None)
  Receive Date: 20040218
  Receipt Date: 20040209
  Transmission Date: 20041129
  Serious: Yes (Hospitalization)
  Sender: FDA-Public Use
  Company Number: US_031199060

PATIENT
  Age: 10 Year
  Sex: Female
  Weight: 24 kg

DRUGS (4)
  1. HUMATROPE [Suspect]
     Indication: TURNER'S SYNDROME
     Dosage: 1.4 MG/1 DAY
     Dates: start: 20021201
  2. ZYRTEC [Concomitant]
  3. MACRODANTIN [Concomitant]
  4. DITROPAN [Concomitant]

REACTIONS (34)
  - ABDOMINAL PAIN [None]
  - ACUTE RESPIRATORY DISTRESS SYNDROME [None]
  - ADENOVIRUS INFECTION [None]
  - ASPIRATION [None]
  - BACILLUS INFECTION [None]
  - BRADYCARDIA [None]
  - CANDIDIASIS [None]
  - CHEST X-RAY ABNORMAL [None]
  - COMPUTERISED TOMOGRAM ABNORMAL [None]
  - CONVULSION [None]
  - CULTURE URINE POSITIVE [None]
  - ENTEROBACTER INFECTION [None]
  - GRAND MAL CONVULSION [None]
  - HYDRONEPHROSIS [None]
  - HYPERCAPNIA [None]
  - KLEBSIELLA INFECTION [None]
  - LUNG INFECTION PSEUDOMONAL [None]
  - MASTOIDITIS [None]
  - MORGANELLA INFECTION [None]
  - PERICARDIAL EFFUSION [None]
  - PNEUMONIA [None]
  - PNEUMOTHORAX [None]
  - PSEUDOMONAS INFECTION [None]
  - PULMONARY FIBROSIS [None]
  - PULMONARY HYPERTENSION [None]
  - PYELOCALIECTASIS [None]
  - PYELONEPHRITIS [None]
  - RESPIRATORY ACIDOSIS [None]
  - RESPIRATORY DISTRESS [None]
  - RESPIRATORY FAILURE [None]
  - SEPSIS [None]
  - SHIFT TO THE LEFT [None]
  - URINARY TRACT INFECTION [None]
  - UROSEPSIS [None]
